FAERS Safety Report 4613331-7 (Version None)
Quarter: 2005Q1

REPORT INFORMATION
  Report Type: 
  Country: None (occurrence: None)
  Receive Date: 20050315
  Receipt Date: 20050304
  Transmission Date: 20050727
  Serious: Yes (Hospitalization)
  Sender: FDA-Public Use
  Company Number: 2005041973

PATIENT
  Age: 66 Year
  Sex: Female

DRUGS (2)
  1. LIPITOR [Suspect]
     Indication: ILL-DEFINED DISORDER
     Dosage: 20 MG (20 MG, 1 IN 1 D)
     Dates: start: 20040901
  2. LEVOTHYROXINE SODIUM [Concomitant]

REACTIONS (11)
  - ADVERSE EVENT [None]
  - ANGER [None]
  - ASTHENIA [None]
  - BLINDNESS [None]
  - DEPRESSION [None]
  - EMOTIONAL DISTRESS [None]
  - HEADACHE [None]
  - INSOMNIA [None]
  - MOVEMENT DISORDER [None]
  - MUSCLE ATROPHY [None]
  - NIGHTMARE [None]
